FAERS Safety Report 19242974 (Version 2)
Quarter: 2021Q2

REPORT INFORMATION
  Report Type: Spontaneous
  Country: IL (occurrence: IL)
  Receive Date: 20210511
  Receipt Date: 20210622
  Transmission Date: 20210717
  Serious: Yes (Other)
  Sender: FDA-Public Use
  Company Number: IL-AMERICAN REGENT INC-2021001155

PATIENT
  Age: 4 Decade
  Sex: Female

DRUGS (1)
  1. FERINJECT [Suspect]
     Active Substance: FERRIC CARBOXYMALTOSE
     Indication: PRODUCT USED FOR UNKNOWN INDICATION
     Dosage: 1000 MILLIGRAM ( 2 AMPOULES) IN 250 ML
     Route: 042

REACTIONS (3)
  - Maternal exposure during pregnancy [Unknown]
  - Syncope [Recovered/Resolved]
  - Blood pressure systolic decreased [Unknown]
